FAERS Safety Report 10039148 (Version 1)
Quarter: 2014Q1

REPORT INFORMATION
  Report Type: Spontaneous
  Country: US (occurrence: US)
  Receive Date: 20140326
  Receipt Date: 20140326
  Transmission Date: 20141002
  Serious: Yes (Other)
  Sender: FDA-Public Use
  Company Number: US-MYLANLABS-2014S1006241

PATIENT
  Age: 60 Year
  Sex: Female

DRUGS (11)
  1. EPINEPHRINE [Suspect]
  2. BENZYLPENICILLIN POTASSIUM [Suspect]
  3. TETRACYCLINE HCL [Suspect]
  4. MACRODANTIN [Suspect]
  5. LEVAQUIN [Suspect]
  6. MACROBID [Suspect]
  7. TALWIN /00052101/ [Suspect]
  8. IODINE [Suspect]
  9. OPTISON /01601801/ [Suspect]
  10. BETIMOL [Suspect]
  11. FLUORESCEIN [Suspect]

REACTIONS (2)
  - Bronchospasm [Unknown]
  - Drug hypersensitivity [Unknown]
